FAERS Safety Report 7900883-4 (Version None)
Quarter: 2011Q4

REPORT INFORMATION
  Report Type: 
  Country: None (occurrence: None)
  Receive Date: 20111108
  Receipt Date: 20111031
  Transmission Date: 20120403
  Serious: Yes (Death, Hospitalization)
  Sender: FDA-Public Use
  Company Number: US-CELGENEUS-163-21880-11110234

PATIENT
  Sex: Male

DRUGS (10)
  1. REVLIMID [Suspect]
     Dosage: 10 MILLIGRAM
     Route: 048
     Dates: start: 20110901
  2. VITAMIN D [Concomitant]
     Route: 065
  3. MORPHINE [Concomitant]
     Indication: PAIN
     Route: 065
  4. ASPIRIN [Concomitant]
     Route: 065
  5. PRILOSEC [Concomitant]
     Route: 065
  6. COMPAZINE [Concomitant]
     Indication: NAUSEA
     Route: 065
  7. FLEXERIL [Concomitant]
     Route: 065
  8. REVLIMID [Suspect]
     Indication: MULTIPLE MYELOMA
     Dosage: 25 MILLIGRAM
     Route: 048
     Dates: start: 20110701
  9. REVLIMID [Suspect]
     Dosage: 15 MILLIGRAM
     Route: 048
     Dates: start: 20111001, end: 20111001
  10. THORAZINE [Concomitant]
     Indication: HICCUPS
     Route: 065

REACTIONS (3)
  - CEREBROVASCULAR ACCIDENT [None]
  - PELVIC FRACTURE [None]
  - FALL [None]
